FAERS Safety Report 9790779 (Version 1)
Quarter: 2013Q4

REPORT INFORMATION
  Report Type: Spontaneous
  Country: FR (occurrence: FR)
  Receive Date: 20131231
  Receipt Date: 20131231
  Transmission Date: 20140711
  Serious: Yes (Hospitalization)
  Sender: FDA-Public Use
  Company Number: FR-AMGEN-FRASP2013090489

PATIENT
  Age: 59 Year
  Sex: Male

DRUGS (1)
  1. NEUPOGEN [Suspect]
     Indication: PRODUCT USED FOR UNKNOWN INDICATION
     Dosage: 48 MU/ DAY
     Route: 058
     Dates: start: 20130521, end: 20130921

REACTIONS (1)
  - Myalgia [Recovered/Resolved]
